FAERS Safety Report 7817827-6 (Version None)
Quarter: 2011Q4

REPORT INFORMATION
  Report Type: 
  Country: None (occurrence: None)
  Receive Date: 20111017
  Receipt Date: 20111005
  Transmission Date: 20120403
  Serious: Yes (Hospitalization)
  Sender: FDA-Public Use
  Company Number: GB-JNJFOC-NSADSS2002024736

PATIENT
  Sex: Female

DRUGS (4)
  1. REMICADE [Suspect]
     Indication: RHEUMATOID ARTHRITIS
     Route: 042
     Dates: start: 20001103
  2. REMICADE [Suspect]
     Route: 042
     Dates: start: 20001117
  3. METHOTREXATE [Suspect]
     Indication: RHEUMATOID ARTHRITIS
     Route: 048
  4. PLACEBO [Suspect]
     Indication: RHEUMATOID ARTHRITIS

REACTIONS (3)
  - SYNOVITIS [None]
  - SCLERITIS [None]
  - CUTANEOUS VASCULITIS [None]
